FAERS Safety Report 5232699-4 (Version None)
Quarter: 2007Q1

REPORT INFORMATION
  Report Type: 
  Country: None (occurrence: None)
  Receive Date: 20070206
  Receipt Date: 20070206
  Transmission Date: 20070707
  Serious: Yes (Hospitalization)
  Sender: FDA-Public Use
  Company Number: None

PATIENT
  Age: 63 Year
  Sex: Male
  Weight: 64.9 kg

DRUGS (1)
  1. LISINOPRIL [Suspect]
     Dosage: 40MG   EVERY DAY   PO
     Route: 048

REACTIONS (5)
  - ASTHENIA [None]
  - FATIGUE [None]
  - HYPONATRAEMIA [None]
  - THIRST [None]
  - URINE OUTPUT INCREASED [None]
